FAERS Safety Report 7602129-3 (Version None)
Quarter: 2011Q3

REPORT INFORMATION
  Report Type: 
  Country: None (occurrence: None)
  Receive Date: 20110711
  Receipt Date: 20110703
  Transmission Date: 20111222
  Serious: Yes (Other)
  Sender: FDA-Public Use
  Company Number: PHHY2011US59780

PATIENT
  Age: 9 Year
  Sex: Female

DRUGS (6)
  1. CLORAZEPATE DIPOTASSIUM [Suspect]
     Indication: EPILEPSY
     Dosage: UNK UKN, UNK
  2. CLONAZEPAM [Suspect]
     Indication: EPILEPSY
     Dosage: UNK UKN, UNK
  3. TOPIRAMATE [Suspect]
     Indication: EPILEPSY
     Dosage: UNK UKN, UNK
  4. VALPROATE SODIUM [Suspect]
     Indication: EPILEPSY
     Dosage: UNK UKN, UNK
  5. CARBAMAZEPINE [Suspect]
     Indication: EPILEPSY
     Dosage: UNK UKN, UNK
  6. LEVETIRACETAM [Suspect]
     Indication: EPILEPSY
     Dosage: UNK UKN, UNK

REACTIONS (5)
  - GRAND MAL CONVULSION [None]
  - MYOCLONIC EPILEPSY [None]
  - PETIT MAL EPILEPSY [None]
  - TONIC CONVULSION [None]
  - DRUG INEFFECTIVE [None]
